FAERS Safety Report 17862612 (Version 6)
Quarter: 2022Q1

REPORT INFORMATION
  Report Type: Report from Study
  Country: JP (occurrence: JP)
  Receive Date: 20200605
  Receipt Date: 20220131
  Transmission Date: 20220423
  Serious: Yes (Death, Other)
  Sender: FDA-Public Use
  Company Number: JP-ABBVIE-20K-087-3378110-00

PATIENT
  Age: 75 Year
  Sex: Male
  Weight: 43 kg

DRUGS (25)
  1. CARBIDOPA\LEVODOPA [Suspect]
     Active Substance: CARBIDOPA\LEVODOPA
     Indication: Parkinson^s disease
     Dosage: MD: 4 ML,CD: 2.0 ML/HR X14 HRS, ED: 1.0 ML/UNITX0
     Route: 050
     Dates: start: 20200130, end: 20200130
  2. CARBIDOPA\LEVODOPA [Suspect]
     Active Substance: CARBIDOPA\LEVODOPA
     Dosage: MD: 4 ML?CD: 2.2 ML/HR X14 HRS?ED: 1.0 ML/UNIT X0
     Route: 050
     Dates: start: 20200131, end: 20200204
  3. CARBIDOPA\LEVODOPA [Suspect]
     Active Substance: CARBIDOPA\LEVODOPA
     Dosage: MD: 4 ML?CD: 2.2 ML/HR X14 HRS?ED: 1.0 ML/UNIT X 0
     Route: 050
     Dates: start: 20200207, end: 20200217
  4. CARBIDOPA\LEVODOPA [Suspect]
     Active Substance: CARBIDOPA\LEVODOPA
     Dosage: MD: 5 ML?CD: 2.4 ML/HR X14 HRS?ED: 1.0 ML/UNIT X1
     Route: 050
     Dates: start: 20200218, end: 20200302
  5. CARBIDOPA\LEVODOPA [Suspect]
     Active Substance: CARBIDOPA\LEVODOPA
     Dosage: MD: 5 ML?CD: 2.6 ML/HR X14 HRS?ED: 1.0 ML/UNIT X1
     Route: 050
     Dates: start: 20200303
  6. CARBIDOPA\LEVODOPA [Concomitant]
     Active Substance: CARBIDOPA\LEVODOPA
     Indication: Parkinson^s disease
     Route: 048
  7. CARBIDOPA\LEVODOPA [Concomitant]
     Active Substance: CARBIDOPA\LEVODOPA
     Dates: start: 20200205, end: 20200206
  8. ROTIGOTINE [Concomitant]
     Active Substance: ROTIGOTINE
     Indication: Parkinson^s disease
     Route: 062
     Dates: end: 20200212
  9. ROTIGOTINE [Concomitant]
     Active Substance: ROTIGOTINE
     Route: 062
     Dates: start: 20200213, end: 20200228
  10. ROTIGOTINE [Concomitant]
     Active Substance: ROTIGOTINE
     Route: 062
     Dates: start: 20200229
  11. ZONISAMIDE [Concomitant]
     Active Substance: ZONISAMIDE
     Indication: Parkinson^s disease
     Route: 048
  12. TAMSULOSIN HYDROCHLORIDE [Concomitant]
     Active Substance: TAMSULOSIN HYDROCHLORIDE
     Indication: Product used for unknown indication
     Route: 048
     Dates: end: 20200408
  13. SILODOSIN [Concomitant]
     Active Substance: SILODOSIN
     Indication: Product used for unknown indication
     Route: 048
     Dates: start: 20200409
  14. BROTIZOLAM [Concomitant]
     Active Substance: BROTIZOLAM
     Indication: Product used for unknown indication
     Route: 048
  15. QUETIAPINE FUMARATE [Concomitant]
     Active Substance: QUETIAPINE FUMARATE
     Indication: Product used for unknown indication
     Route: 048
  16. CLOTIAZEPAM [Concomitant]
     Active Substance: CLOTIAZEPAM
     Indication: Product used for unknown indication
     Route: 048
  17. CLOSTRIDIUM BUTYRICUM SPORES STRAIN M-55 [Concomitant]
     Active Substance: CLOSTRIDIUM BUTYRICUM SPORES STRAIN M-55
     Indication: Product used for unknown indication
     Route: 048
  18. MIDODRINE HYDROCHLORIDE [Concomitant]
     Active Substance: MIDODRINE HYDROCHLORIDE
     Indication: Product used for unknown indication
     Route: 048
     Dates: start: 20200227
  19. OCTOTIAMINE [Concomitant]
     Active Substance: OCTOTIAMINE
     Indication: Product used for unknown indication
     Route: 048
     Dates: start: 20200227
  20. RIBOFLAVIN [Concomitant]
     Active Substance: RIBOFLAVIN
     Indication: Product used for unknown indication
     Route: 048
     Dates: start: 20200227
  21. PYRIDOXINE HYDROCHLORIDE [Concomitant]
     Active Substance: PYRIDOXINE HYDROCHLORIDE
     Indication: Product used for unknown indication
     Route: 048
     Dates: start: 20200227
  22. CYANOCOBALAMIN [Concomitant]
     Active Substance: CYANOCOBALAMIN
     Indication: Product used for unknown indication
     Route: 048
     Dates: start: 20200227
  23. PAROXETINE HYDROCHLORIDE [Concomitant]
     Active Substance: PAROXETINE HYDROCHLORIDE
     Indication: Product used for unknown indication
     Route: 048
     Dates: start: 20200227
  24. SENNOSIDES [Concomitant]
     Active Substance: SENNOSIDES
     Indication: Product used for unknown indication
     Route: 048
     Dates: end: 20200331
  25. CARBOHYDRATES\FATTY ACIDS\MINERALS\PROTEIN\VITAMINS [Concomitant]
     Active Substance: CARBOHYDRATES\FATTY ACIDS\MINERALS\PROTEIN\VITAMINS
     Indication: Product used for unknown indication
     Route: 048
     Dates: start: 20200326

REACTIONS (9)
  - Sudden death [Fatal]
  - Respiratory arrest [Unknown]
  - Loss of consciousness [Unknown]
  - Medical device site erosion [Unknown]
  - Gastric disorder [Unknown]
  - Tremor [Unknown]
  - Blood pressure decreased [Unknown]
  - Hallucination [Unknown]
  - Confusional state [Unknown]

NARRATIVE: CASE EVENT DATE: 20200101
